FAERS Safety Report 18882621 (Version 1)
Quarter: 2021Q1

REPORT INFORMATION
  Report Type: Spontaneous
  Country: US (occurrence: US)
  Receive Date: 20210212
  Receipt Date: 20210212
  Transmission Date: 20210420
  Serious: No
  Sender: FDA-Public Use
  Company Number: US-GLAXOSMITHKLINE-US2021AMR027506

PATIENT
  Sex: Male

DRUGS (2)
  1. SUMATRIPTAN (SUMATRIPTAN SUCCINATE) [Suspect]
     Active Substance: SUMATRIPTAN SUCCINATE
     Indication: MIGRAINE
     Dosage: 6 MG
  2. SUMATRIPTAN (SUMATRIPTAN SUCCINATE) [Suspect]
     Active Substance: SUMATRIPTAN SUCCINATE

REACTIONS (1)
  - Drug ineffective [Unknown]
